FAERS Safety Report 19205270 (Version 1)
Quarter: 2021Q2

REPORT INFORMATION
  Report Type: Spontaneous
  Country: US (occurrence: US)
  Receive Date: 20210430
  Receipt Date: 20210430
  Transmission Date: 20210717
  Serious: No
  Sender: FDA-Public Use
  Company Number: None

PATIENT
  Sex: Female

DRUGS (1)
  1. HYDROXYPROGEST CAPR SDV 250MG/ML AUROMEDICS PHARMA [Suspect]
     Active Substance: HYDROXYPROGESTERONE CAPROATE
     Indication: PREMATURE LABOUR
     Route: 030
     Dates: start: 20210324

REACTIONS (3)
  - Maternal drugs affecting foetus [None]
  - Maternal exposure timing unspecified [None]
  - Dyspnoea [None]
